FAERS Safety Report 4822622-6 (Version None)
Quarter: 2005Q4

REPORT INFORMATION
  Report Type: 
  Country: None (occurrence: None)
  Receive Date: 20051108
  Receipt Date: 20050819
  Transmission Date: 20060501
  Serious: Yes (Hospitalization)
  Sender: FDA-Public Use
  Company Number: PHBS2005BR12267

PATIENT
  Age: 6 Year
  Sex: Male

DRUGS (5)
  1. RITALIN [Suspect]
     Indication: ATTENTION DEFICIT/HYPERACTIVITY DISORDER
     Dosage: 10 MG, BID
     Route: 048
     Dates: start: 20050222
  2. RITALIN [Suspect]
     Dosage: 10 MG, TID
     Route: 048
  3. ATENSINA [Concomitant]
     Indication: HYPERTENSION
  4. TOFRANIL [Concomitant]
     Dosage: 10 MG AND 25 MG
     Route: 065
  5. NEULEPTIL [Concomitant]
     Dosage: 4 MG/D
     Route: 065

REACTIONS (5)
  - AGGRESSION [None]
  - AGITATION [None]
  - ATTENTION DEFICIT/HYPERACTIVITY DISORDER [None]
  - CENTRAL NERVOUS SYSTEM LESION [None]
  - POST-TRAUMATIC STRESS DISORDER [None]
